FAERS Safety Report 6577598-0 (Version None)
Quarter: 2010Q1

REPORT INFORMATION
  Report Type: 
  Country: None (occurrence: None)
  Receive Date: 20100211
  Receipt Date: 20100128
  Transmission Date: 20100710
  Serious: Yes (Other)
  Sender: FDA-Public Use
  Company Number: PHHY2010ES07246

PATIENT
  Age: 28 Year
  Sex: Female

DRUGS (3)
  1. CYCLOSPORINE [Suspect]
     Indication: PUSTULAR PSORIASIS
     Dosage: 3 MG/KG/DAY
     Dates: start: 20070701
  2. PREDNISONE [Concomitant]
     Indication: PUSTULAR PSORIASIS
     Dosage: 30 MG/DAY
  3. INFLIXIMAB [Concomitant]
     Indication: PUSTULAR PSORIASIS
     Dosage: 5 MG/KG, BIMONTHLY
     Dates: start: 20080107

REACTIONS (4)
  - ANTINUCLEAR ANTIBODY INCREASED [None]
  - CAESAREAN SECTION [None]
  - DRUG EXPOSURE DURING PREGNANCY [None]
  - URINARY TRACT INFECTION [None]
